FAERS Safety Report 23876464 (Version 4)
Quarter: 2024Q4

REPORT INFORMATION
  Report Type: Report from Study
  Country: US (occurrence: US)
  Receive Date: 20240521
  Receipt Date: 20241105
  Transmission Date: 20250114
  Serious: Yes (Hospitalization, Other)
  Sender: ABBVIE
  Company Number: US-ABBVIE-5763486

PATIENT
  Age: 81 Year
  Sex: Female

DRUGS (5)
  1. VENCLEXTA [Suspect]
     Active Substance: VENETOCLAX
     Indication: Acute myeloid leukaemia
     Dosage: END DATE- 2024
     Route: 048
     Dates: start: 202402
  2. VENCLEXTA [Suspect]
     Active Substance: VENETOCLAX
     Indication: Acute myeloid leukaemia
     Route: 048
     Dates: start: 20240314, end: 20240619
  3. ZOFRAN [Concomitant]
     Active Substance: ONDANSETRON HYDROCHLORIDE
     Indication: Product used for unknown indication
  4. POSACONAZOLE [Concomitant]
     Active Substance: POSACONAZOLE
     Indication: Antifungal prophylaxis
  5. VIDAZA [Concomitant]
     Active Substance: AZACITIDINE
     Indication: Product used for unknown indication

REACTIONS (20)
  - Pulmonary hypertension [Unknown]
  - Dyspnoea [Not Recovered/Not Resolved]
  - Dehydration [Unknown]
  - Brain fog [Unknown]
  - Cardiac failure congestive [Unknown]
  - Hypoaesthesia [Unknown]
  - Dry skin [Unknown]
  - Fluid retention [Recovered/Resolved]
  - Diastolic dysfunction [Unknown]
  - Poor quality sleep [Unknown]
  - Ageusia [Unknown]
  - Blood creatinine increased [Unknown]
  - Renal injury [Unknown]
  - Drug interaction [Unknown]
  - Blood urea increased [Unknown]
  - Anxiety [Unknown]
  - Osteoarthritis [Unknown]
  - Loss of personal independence in daily activities [Unknown]
  - Ear disorder [Unknown]
  - Nasopharyngitis [Unknown]

NARRATIVE: CASE EVENT DATE: 20240101
